FAERS Safety Report 5174968-2 (Version None)
Quarter: 2006Q4

REPORT INFORMATION
  Report Type: 
  Country: None (occurrence: None)
  Receive Date: 20061214
  Receipt Date: 20060531
  Transmission Date: 20070319
  Serious: No
  Sender: FDA-Public Use
  Company Number: US-AMGEN-KDL181383

PATIENT
  Sex: Female

DRUGS (2)
  1. ENBREL [Suspect]
     Indication: RHEUMATOID ARTHRITIS
     Route: 058
     Dates: start: 20060228
  2. METHOTREXATE [Concomitant]
     Route: 058
     Dates: start: 20050101

REACTIONS (8)
  - CATARACT [None]
  - COUGH [None]
  - HAEMORRHAGE [None]
  - INCREASED TENDENCY TO BRUISE [None]
  - INJECTION SITE BRUISING [None]
  - INJECTION SITE REACTION [None]
  - NASOPHARYNGITIS [None]
  - PHARYNGOLARYNGEAL PAIN [None]
